FAERS Safety Report 9457397 (Version 1)
Quarter: 2013Q3

REPORT INFORMATION
  Report Type: Spontaneous
  Country: CO (occurrence: CO)
  Receive Date: 20130814
  Receipt Date: 20130814
  Transmission Date: 20140515
  Serious: Yes (Hospitalization)
  Sender: FDA-Public Use
  Company Number: CO-MERCK-1308COL003571

PATIENT
  Age: 66 Year
  Sex: Female

DRUGS (2)
  1. PEG-INTRON [Suspect]
     Indication: HEPATITIS C
     Dosage: 100 MCG QW
     Route: 058
     Dates: start: 20130716
  2. REBETOL [Suspect]
     Indication: HEPATITIS C
     Dosage: 1000 MG (200 MG X 5)
     Route: 048
     Dates: start: 20130716

REACTIONS (4)
  - Decreased appetite [Not Recovered/Not Resolved]
  - Asthenia [Not Recovered/Not Resolved]
  - Dizziness [Not Recovered/Not Resolved]
  - Blood count abnormal [Not Recovered/Not Resolved]
